FAERS Safety Report 13477939 (Version 3)
Quarter: 2018Q1

REPORT INFORMATION
  Report Type: Spontaneous
  Country: FR (occurrence: FR)
  Receive Date: 20170425
  Receipt Date: 20180220
  Transmission Date: 20180508
  Serious: Yes (Hospitalization, Other)
  Sender: FDA-Public Use
  Company Number: FR-IPSEN BIOPHARMACEUTICALS, INC.-2017-03199

PATIENT
  Age: 61 Year
  Sex: Female
  Weight: 57 kg

DRUGS (19)
  1. CREON [Concomitant]
     Active Substance: PANCRELIPASE AMYLASE\PANCRELIPASE LIPASE\PANCRELIPASE PROTEASE
     Indication: CARCINOID SYNDROME
     Route: 048
     Dates: start: 20111128
  2. GAVISCON [Concomitant]
     Active Substance: ALUMINUM HYDROXIDE\MAGNESIUM CARBONATE
     Indication: CARCINOID SYNDROME
     Route: 048
     Dates: start: 20150612
  3. LOPERAMIDE [Concomitant]
     Active Substance: LOPERAMIDE
     Indication: CARCINOID SYNDROME
     Route: 048
     Dates: start: 20111222
  4. LX1606 [Concomitant]
     Route: 048
     Dates: start: 20180118
  5. DAFALGON [Concomitant]
     Indication: CARCINOID SYNDROME
     Route: 048
     Dates: start: 20150130
  6. LX1606 [Concomitant]
     Route: 048
     Dates: start: 20170126, end: 20180110
  7. OMEPRAZOLE. [Concomitant]
     Active Substance: OMEPRAZOLE
     Indication: CARCINOID SYNDROME
     Route: 048
     Dates: start: 20150612
  8. AFINITOR [Concomitant]
     Active Substance: EVEROLIMUS
     Route: 048
     Dates: start: 20170420
  9. LX1606 [Concomitant]
     Route: 048
     Dates: start: 20170118, end: 20170124
  10. SMECTA [Suspect]
     Active Substance: MONTMORILLONITE
     Indication: ANTIDIARRHOEAL SUPPORTIVE CARE
     Route: 048
     Dates: start: 201605
  11. AFINITOR [Concomitant]
     Active Substance: EVEROLIMUS
     Route: 048
     Dates: start: 20160615
  12. OMEPRAZOLE. [Concomitant]
     Active Substance: OMEPRAZOLE
     Route: 048
  13. LANREOTIDE ATG 120MG [Suspect]
     Active Substance: LANREOTIDE
     Indication: CARCINOID TUMOUR
  14. LX1606 [Concomitant]
     Indication: CARCINOID SYNDROME
     Route: 048
     Dates: start: 20140710, end: 20170111
  15. LANREOTIDE ATG 120MG [Suspect]
     Active Substance: LANREOTIDE
     Indication: CARCINOID SYNDROME
     Dosage: 120 MG
     Route: 030
     Dates: start: 200606
  16. AFINITOR [Concomitant]
     Active Substance: EVEROLIMUS
     Indication: CARCINOID SYNDROME
     Dosage: 5 MG 6 DAYS, 10 MG, 1 DAY
     Route: 048
     Dates: start: 20160101, end: 20160615
  17. DEROXAT [Concomitant]
     Active Substance: PAROXETINE HYDROCHLORIDE
     Route: 048
  18. STILNOX [Concomitant]
     Active Substance: ZOLPIDEM TARTRATE
     Route: 048
  19. IMODIUM [Concomitant]
     Active Substance: LOPERAMIDE HYDROCHLORIDE
     Indication: DIARRHOEA
     Route: 048
     Dates: start: 20170706

REACTIONS (23)
  - Intestinal obstruction [Recovered/Resolved]
  - Back pain [Not Recovered/Not Resolved]
  - Osteoporosis [Unknown]
  - Femoral neck fracture [Recovered/Resolved]
  - Eyelid oedema [Not Recovered/Not Resolved]
  - Anxiety [Not Recovered/Not Resolved]
  - Insomnia [Not Recovered/Not Resolved]
  - Dry skin [Recovered/Resolved]
  - Alanine aminotransferase increased [Not Recovered/Not Resolved]
  - Malnutrition [Unknown]
  - Hypokalaemia [Unknown]
  - Rash [Not Recovered/Not Resolved]
  - Hypercholesterolaemia [Not Recovered/Not Resolved]
  - Alopecia [Recovered/Resolved]
  - Oedema [Unknown]
  - Aphthous ulcer [Unknown]
  - Flatulence [Not Recovered/Not Resolved]
  - Tooth infection [Unknown]
  - Subileus [Not Recovered/Not Resolved]
  - Abdominal pain upper [Not Recovered/Not Resolved]
  - Nausea [Unknown]
  - Gamma-glutamyltransferase increased [Not Recovered/Not Resolved]
  - Incorrect route of drug administration [Unknown]

NARRATIVE: CASE EVENT DATE: 200812
